FAERS Safety Report 23707579 (Version 12)
Quarter: 2024Q3

REPORT INFORMATION
  Report Type: Spontaneous
  Country: GB (occurrence: GB)
  Receive Date: 20240404
  Receipt Date: 20240910
  Transmission Date: 20241017
  Serious: Yes (Other)
  Sender: SANDOZ
  Company Number: None

PATIENT
  Sex: Male

DRUGS (251)
  1. ACITRETIN [Suspect]
     Active Substance: ACITRETIN
     Dosage: UNK
     Route: 050
  2. ACITRETIN [Suspect]
     Active Substance: ACITRETIN
     Route: 050
  3. ACITRETIN [Suspect]
     Active Substance: ACITRETIN
     Dosage: UNK
     Route: 059
  4. ACITRETIN [Suspect]
     Active Substance: ACITRETIN
     Dosage: UNK
     Route: 059
  5. ACITRETIN [Suspect]
     Active Substance: ACITRETIN
     Indication: Psoriasis
     Dosage: UNK
     Route: 065
  6. ACITRETIN [Suspect]
     Active Substance: ACITRETIN
     Route: 058
  7. ACITRETIN [Suspect]
     Active Substance: ACITRETIN
     Route: 058
  8. ACITRETIN [Suspect]
     Active Substance: ACITRETIN
     Route: 065
  9. ACITRETIN [Suspect]
     Active Substance: ACITRETIN
     Route: 065
  10. ACITRETIN [Suspect]
     Active Substance: ACITRETIN
     Route: 065
  11. ACITRETIN [Suspect]
     Active Substance: ACITRETIN
     Route: 065
  12. ACITRETIN [Suspect]
     Active Substance: ACITRETIN
     Route: 065
  13. ACITRETIN [Suspect]
     Active Substance: ACITRETIN
     Route: 065
  14. ACITRETIN [Suspect]
     Active Substance: ACITRETIN
     Route: 065
  15. ACITRETIN [Suspect]
     Active Substance: ACITRETIN
     Route: 065
  16. ACITRETIN [Suspect]
     Active Substance: ACITRETIN
     Route: 065
  17. ACITRETIN [Suspect]
     Active Substance: ACITRETIN
     Route: 065
  18. ACITRETIN [Suspect]
     Active Substance: ACITRETIN
     Route: 065
  19. ACITRETIN [Suspect]
     Active Substance: ACITRETIN
     Route: 065
  20. ACITRETIN [Suspect]
     Active Substance: ACITRETIN
     Route: 065
  21. ACITRETIN [Suspect]
     Active Substance: ACITRETIN
     Route: 065
  22. ACITRETIN [Suspect]
     Active Substance: ACITRETIN
     Route: 065
  23. ACITRETIN [Suspect]
     Active Substance: ACITRETIN
     Route: 065
  24. ACITRETIN [Suspect]
     Active Substance: ACITRETIN
     Dosage: UNK
     Route: 050
  25. ACITRETIN [Suspect]
     Active Substance: ACITRETIN
     Dosage: UNK
     Route: 065
  26. ACITRETIN [Suspect]
     Active Substance: ACITRETIN
     Dosage: UNK
     Route: 065
  27. ACITRETIN [Suspect]
     Active Substance: ACITRETIN
     Dosage: UNK
     Route: 065
  28. ACITRETIN [Suspect]
     Active Substance: ACITRETIN
     Dosage: UNK
     Route: 065
  29. ACITRETIN [Suspect]
     Active Substance: ACITRETIN
     Dosage: UNK
     Route: 065
  30. ACITRETIN [Suspect]
     Active Substance: ACITRETIN
     Dosage: UNK
     Route: 065
  31. ACITRETIN [Suspect]
     Active Substance: ACITRETIN
     Dosage: UNK
     Route: 065
  32. ACITRETIN [Suspect]
     Active Substance: ACITRETIN
     Dosage: UNK
     Route: 065
  33. ACITRETIN [Suspect]
     Active Substance: ACITRETIN
     Dosage: UNK
     Route: 065
  34. ACITRETIN [Suspect]
     Active Substance: ACITRETIN
     Dosage: UNK
     Route: 065
  35. ACITRETIN [Suspect]
     Active Substance: ACITRETIN
     Dosage: UNK
     Route: 065
  36. ACITRETIN [Suspect]
     Active Substance: ACITRETIN
     Dosage: UNK
     Route: 065
  37. ACITRETIN [Suspect]
     Active Substance: ACITRETIN
     Dosage: UNK
     Route: 065
  38. ACITRETIN [Suspect]
     Active Substance: ACITRETIN
     Dosage: UNK
     Route: 065
  39. ACITRETIN [Suspect]
     Active Substance: ACITRETIN
     Dosage: UNK
     Route: 065
  40. ACITRETIN [Suspect]
     Active Substance: ACITRETIN
     Dosage: UNK
     Route: 065
  41. ACITRETIN [Suspect]
     Active Substance: ACITRETIN
     Dosage: UNK
     Route: 065
  42. ACITRETIN [Suspect]
     Active Substance: ACITRETIN
     Dosage: UNK
     Route: 065
  43. ACITRETIN [Suspect]
     Active Substance: ACITRETIN
     Route: 048
  44. ACITRETIN [Suspect]
     Active Substance: ACITRETIN
     Route: 050
  45. ACITRETIN [Suspect]
     Active Substance: ACITRETIN
     Route: 065
  46. ACITRETIN [Suspect]
     Active Substance: ACITRETIN
     Route: 065
  47. ACITRETIN [Suspect]
     Active Substance: ACITRETIN
     Route: 065
  48. ACITRETIN [Suspect]
     Active Substance: ACITRETIN
     Route: 065
  49. ACITRETIN [Suspect]
     Active Substance: ACITRETIN
     Route: 065
  50. ACITRETIN [Suspect]
     Active Substance: ACITRETIN
     Route: 065
  51. ACITRETIN [Suspect]
     Active Substance: ACITRETIN
     Route: 065
  52. ACITRETIN [Suspect]
     Active Substance: ACITRETIN
     Route: 065
  53. ACITRETIN [Suspect]
     Active Substance: ACITRETIN
     Route: 065
  54. ACITRETIN [Suspect]
     Active Substance: ACITRETIN
     Route: 065
  55. ACITRETIN [Suspect]
     Active Substance: ACITRETIN
     Route: 065
  56. ACITRETIN [Suspect]
     Active Substance: ACITRETIN
     Route: 065
  57. ACITRETIN [Suspect]
     Active Substance: ACITRETIN
     Route: 065
  58. ACITRETIN [Suspect]
     Active Substance: ACITRETIN
     Route: 065
  59. ACITRETIN [Suspect]
     Active Substance: ACITRETIN
     Route: 065
  60. BETAMETHASONE DIPROPIONATE [Suspect]
     Active Substance: BETAMETHASONE DIPROPIONATE
     Dosage: UNK
     Route: 003
  61. BETAMETHASONE DIPROPIONATE [Suspect]
     Active Substance: BETAMETHASONE DIPROPIONATE
     Indication: Product used for unknown indication
     Dosage: UNK
     Route: 065
  62. BETAMETHASONE DIPROPIONATE [Suspect]
     Active Substance: BETAMETHASONE DIPROPIONATE
     Dosage: UNK
     Route: 065
  63. BETAMETHASONE DIPROPIONATE [Suspect]
     Active Substance: BETAMETHASONE DIPROPIONATE
     Dosage: UNK
     Route: 065
  64. CYCLOSPORINE [Suspect]
     Active Substance: CYCLOSPORINE
     Route: 050
  65. CYCLOSPORINE [Suspect]
     Active Substance: CYCLOSPORINE
     Dosage: 300 MG, QMO
     Route: 050
  66. CYCLOSPORINE [Suspect]
     Active Substance: CYCLOSPORINE
     Dosage: 300 MG, QMO
     Route: 050
  67. CYCLOSPORINE [Suspect]
     Active Substance: CYCLOSPORINE
     Dosage: 300 MILLIGRAM, MONTHLY
     Route: 058
  68. CYCLOSPORINE [Suspect]
     Active Substance: CYCLOSPORINE
     Dosage: UNK
     Route: 050
  69. CYCLOSPORINE [Suspect]
     Active Substance: CYCLOSPORINE
     Dosage: 300 MILLIGRAM
     Route: 065
  70. CYCLOSPORINE [Suspect]
     Active Substance: CYCLOSPORINE
     Dosage: UNK
     Route: 050
  71. CYCLOSPORINE [Suspect]
     Active Substance: CYCLOSPORINE
     Dosage: UNK
     Route: 050
  72. CYCLOSPORINE [Suspect]
     Active Substance: CYCLOSPORINE
     Dosage: UNK
     Route: 050
  73. CYCLOSPORINE [Suspect]
     Active Substance: CYCLOSPORINE
     Dosage: UNK
     Route: 058
  74. CYCLOSPORINE [Suspect]
     Active Substance: CYCLOSPORINE
     Dosage: UNK
     Route: 058
  75. CYCLOSPORINE [Suspect]
     Active Substance: CYCLOSPORINE
     Indication: Psoriasis
     Dosage: UNK
     Route: 065
  76. CYCLOSPORINE [Suspect]
     Active Substance: CYCLOSPORINE
     Dosage: UNK
     Route: 065
  77. CYCLOSPORINE [Suspect]
     Active Substance: CYCLOSPORINE
     Dosage: UNK
     Route: 065
  78. CYCLOSPORINE [Suspect]
     Active Substance: CYCLOSPORINE
     Dosage: UNK
     Route: 065
  79. CYCLOSPORINE [Suspect]
     Active Substance: CYCLOSPORINE
     Dosage: UNK
     Route: 065
  80. CYCLOSPORINE [Suspect]
     Active Substance: CYCLOSPORINE
     Route: 065
  81. COCODAMOL [Suspect]
     Active Substance: ACETAMINOPHEN\CODEINE PHOSPHATE
     Dosage: 2 DOSAGE FORM, QD (2 DOSAGE FORM, TID (30/500MG 2 TABLETS TDS) ;TIME INTERVAL:)
     Route: 048
  82. COCODAMOL [Suspect]
     Active Substance: ACETAMINOPHEN\CODEINE PHOSPHATE
     Dosage: 2 DOSAGE FORM, QD (ONCE DAILY)
     Route: 048
  83. COCODAMOL [Suspect]
     Active Substance: ACETAMINOPHEN\CODEINE PHOSPHATE
     Dosage: 2 DOSAGE FORM, TID (30/500MG 2 TABLETS TDS) ;TIME INTERVAL:
     Route: 065
  84. COCODAMOL [Suspect]
     Active Substance: ACETAMINOPHEN\CODEINE PHOSPHATE
     Dosage: 6 DOSAGE FORM, QD (1 TIME EVERY DAY)
     Route: 050
  85. COCODAMOL [Suspect]
     Active Substance: ACETAMINOPHEN\CODEINE PHOSPHATE
     Dosage: 6 DOSAGE FORM, QD
     Route: 048
  86. COCODAMOL [Suspect]
     Active Substance: ACETAMINOPHEN\CODEINE PHOSPHATE
     Dosage: 6 DOSAGE FORM, QD
     Route: 065
  87. COCODAMOL [Suspect]
     Active Substance: ACETAMINOPHEN\CODEINE PHOSPHATE
     Dosage: 6 DOSAGE FORM, QD
     Route: 065
  88. COCODAMOL [Suspect]
     Active Substance: ACETAMINOPHEN\CODEINE PHOSPHATE
     Dosage: 6 DOSAGE FORM, QD
     Route: 065
  89. COCODAMOL [Suspect]
     Active Substance: ACETAMINOPHEN\CODEINE PHOSPHATE
     Dosage: 6 DOSAGE FORM, QD (2 DOSAGE FORM, TID (30/500MG 2 TABLETS TDS) ;TIME INTERVAL:0.33333333 DAYS)
     Route: 048
  90. COCODAMOL [Suspect]
     Active Substance: ACETAMINOPHEN\CODEINE PHOSPHATE
     Dosage: 6 DOSAGE FORM, QD
     Route: 065
  91. COCODAMOL [Suspect]
     Active Substance: ACETAMINOPHEN\CODEINE PHOSPHATE
     Indication: Product used for unknown indication
     Dosage: 30/500MG 2 TABLETS TDS
     Route: 065
  92. ACETAMINOPHEN\CODEINE PHOSPHATE [Suspect]
     Active Substance: ACETAMINOPHEN\CODEINE PHOSPHATE
     Indication: Product used for unknown indication
     Dosage: TIME INTERVAL: 0.33333333 DAYS: 2 DOSAGE FORM, TID (30/500MG 2 TABLETS TDS)6 DOSAGE FORM, QD
     Route: 065
  93. COSENTYX [Suspect]
     Active Substance: SECUKINUMAB
     Dosage: 300 MG, QMO (MONTHLY)
     Route: 059
  94. COSENTYX [Suspect]
     Active Substance: SECUKINUMAB
     Dosage: 300 MG, QMO (MONTHLY)
     Route: 059
  95. COSENTYX [Suspect]
     Active Substance: SECUKINUMAB
     Dosage: 300 MILLIGRAM, MONTHLY QMO (300 MG MONTHLY)
     Route: 059
  96. COSENTYX [Suspect]
     Active Substance: SECUKINUMAB
     Dosage: 300 MILLIGRAM, MONTHLY QMO (300 MG MONTHLY)
     Route: 059
  97. COSENTYX [Suspect]
     Active Substance: SECUKINUMAB
     Dosage: 300 MG MONTHLY
     Route: 058
  98. COSENTYX [Suspect]
     Active Substance: SECUKINUMAB
     Dosage: 300 MG, QMO (MONTHLY)
     Route: 058
  99. COSENTYX [Suspect]
     Active Substance: SECUKINUMAB
     Dosage: 300 MG, QMO (MONTHLY)
     Route: 058
  100. COSENTYX [Suspect]
     Active Substance: SECUKINUMAB
     Dosage: 300 MG, QMO (MONTHLY)
     Route: 058
  101. COSENTYX [Suspect]
     Active Substance: SECUKINUMAB
     Dosage: 300 MG, QMO (MONTHLY)
     Route: 058
  102. COSENTYX [Suspect]
     Active Substance: SECUKINUMAB
     Dosage: 300 MG, QMO (MONTHLY)
     Route: 058
  103. COSENTYX [Suspect]
     Active Substance: SECUKINUMAB
     Dosage: 300 MG, QMO (MONTHLY)
     Route: 058
  104. COSENTYX [Suspect]
     Active Substance: SECUKINUMAB
     Dosage: 300 MG, MONTHLY
     Route: 050
  105. COSENTYX [Suspect]
     Active Substance: SECUKINUMAB
     Dosage: 300 MG, MONTHLY
     Route: 058
  106. COSENTYX [Suspect]
     Active Substance: SECUKINUMAB
     Dosage: 300 MILLIGRAM, MONTHLY QMO (300 MG MONTHLY)
     Route: 058
  107. COSENTYX [Suspect]
     Active Substance: SECUKINUMAB
     Route: 058
  108. COSENTYX [Suspect]
     Active Substance: SECUKINUMAB
     Route: 058
  109. COSENTYX [Suspect]
     Active Substance: SECUKINUMAB
     Dosage: 300 MG MONTHLY
     Route: 050
  110. COSENTYX [Suspect]
     Active Substance: SECUKINUMAB
     Dosage: 300 MG MONTHLY
     Route: 050
  111. COSENTYX [Suspect]
     Active Substance: SECUKINUMAB
     Indication: Product used for unknown indication
     Dosage: 300 MG MONTHLY
     Route: 058
  112. COSENTYX [Suspect]
     Active Substance: SECUKINUMAB
     Dosage: 300 MG, QMO (MONTHLY)
     Route: 050
  113. COSENTYX [Suspect]
     Active Substance: SECUKINUMAB
     Dosage: 300 MG, QMO (MONTHLY)
     Route: 050
  114. COSENTYX [Suspect]
     Active Substance: SECUKINUMAB
     Dosage: 300 MILLIGRAM, MONTHLY QMO (300 MG MONTHLY)
     Route: 058
  115. DAIVOBET [Suspect]
     Active Substance: BETAMETHASONE DIPROPIONATE\CALCIPOTRIENE
     Dosage: UNK (RARELY, QV)
     Route: 065
  116. DAIVOBET [Suspect]
     Active Substance: BETAMETHASONE DIPROPIONATE\CALCIPOTRIENE
     Dosage: UNK (RARELY, QV)
     Route: 065
  117. DAIVOBET [Suspect]
     Active Substance: BETAMETHASONE DIPROPIONATE\CALCIPOTRIENE
     Dosage: UNK (RARELY, QV)
     Route: 065
  118. DAIVOBET [Suspect]
     Active Substance: BETAMETHASONE DIPROPIONATE\CALCIPOTRIENE
     Dosage: UNK (RARELY, QV)
     Route: 065
  119. DAIVOBET [Suspect]
     Active Substance: BETAMETHASONE DIPROPIONATE\CALCIPOTRIENE
     Dosage: UNK (RARELY, QV)
     Route: 065
  120. DAIVOBET [Suspect]
     Active Substance: BETAMETHASONE DIPROPIONATE\CALCIPOTRIENE
     Dosage: UNK (RARELY, QV)
     Route: 065
  121. DAIVOBET [Suspect]
     Active Substance: BETAMETHASONE DIPROPIONATE\CALCIPOTRIENE
     Dosage: UNK UNK, PRN (RARELY, QV)
     Route: 048
  122. DAIVOBET [Suspect]
     Active Substance: BETAMETHASONE DIPROPIONATE\CALCIPOTRIENE
     Dosage: UNK UNK, PRN (RARELY, QV)
     Route: 048
  123. DAIVOBET [Suspect]
     Active Substance: BETAMETHASONE DIPROPIONATE\CALCIPOTRIENE
     Dosage: UNK UNK, PRN (RARELY, QV)
     Route: 048
  124. DAIVOBET [Suspect]
     Active Substance: BETAMETHASONE DIPROPIONATE\CALCIPOTRIENE
     Dosage: UNK (RARELY, QV)
     Route: 003
  125. DAIVOBET [Suspect]
     Active Substance: BETAMETHASONE DIPROPIONATE\CALCIPOTRIENE
     Dosage: UNK (RARELY, QV)
     Route: 058
  126. DAIVOBET [Suspect]
     Active Substance: BETAMETHASONE DIPROPIONATE\CALCIPOTRIENE
     Indication: Product used for unknown indication
     Dosage: UNK UNK, PRN (RARELY, QV
     Route: 048
  127. BETAMETHASONE DIPROPIONATE\CALCIPOTRIENE MONOHYDRATE [Suspect]
     Active Substance: BETAMETHASONE DIPROPIONATE\CALCIPOTRIENE MONOHYDRATE
     Indication: Product used for unknown indication
     Dosage: UNK (RARELY, QV)
     Route: 050
  128. BETAMETHASONE DIPROPIONATE\CALCIPOTRIENE MONOHYDRATE [Suspect]
     Active Substance: BETAMETHASONE DIPROPIONATE\CALCIPOTRIENE MONOHYDRATE
     Dosage: UNK (RARELY, QV)
     Route: 050
  129. BETAMETHASONE DIPROPIONATE\CALCIPOTRIENE MONOHYDRATE [Suspect]
     Active Substance: BETAMETHASONE DIPROPIONATE\CALCIPOTRIENE MONOHYDRATE
     Dosage: UNK (RARELY, QV)
     Route: 050
  130. BETAMETHASONE DIPROPIONATE\CALCIPOTRIENE MONOHYDRATE [Suspect]
     Active Substance: BETAMETHASONE DIPROPIONATE\CALCIPOTRIENE MONOHYDRATE
     Dosage: UNK (RARELY, QV); ;
     Route: 050
  131. BETAMETHASONE DIPROPIONATE\CALCIPOTRIENE MONOHYDRATE [Suspect]
     Active Substance: BETAMETHASONE DIPROPIONATE\CALCIPOTRIENE MONOHYDRATE
     Dosage: UNK (RARELY, QV); ;
     Route: 050
  132. BETAMETHASONE DIPROPIONATE\CALCIPOTRIENE MONOHYDRATE [Suspect]
     Active Substance: BETAMETHASONE DIPROPIONATE\CALCIPOTRIENE MONOHYDRATE
     Dosage: UNK (RARELY, QV); ;
     Route: 050
  133. BETAMETHASONE DIPROPIONATE\CALCIPOTRIENE MONOHYDRATE [Suspect]
     Active Substance: BETAMETHASONE DIPROPIONATE\CALCIPOTRIENE MONOHYDRATE
     Dosage: UNK (RARELY, QV); ;; ;
     Route: 048
  134. BETAMETHASONE DIPROPIONATE\CALCIPOTRIENE MONOHYDRATE [Suspect]
     Active Substance: BETAMETHASONE DIPROPIONATE\CALCIPOTRIENE MONOHYDRATE
     Dosage: UNK (RARELY, QV); ;; ;
     Route: 048
  135. BETAMETHASONE DIPROPIONATE\CALCIPOTRIENE MONOHYDRATE [Suspect]
     Active Substance: BETAMETHASONE DIPROPIONATE\CALCIPOTRIENE MONOHYDRATE
     Dosage: UNK; ;
     Route: 050
  136. BETAMETHASONE DIPROPIONATE\CALCIPOTRIENE MONOHYDRATE [Suspect]
     Active Substance: BETAMETHASONE DIPROPIONATE\CALCIPOTRIENE MONOHYDRATE
     Dosage: RARELY, QV
     Route: 048
  137. BETAMETHASONE DIPROPIONATE\CALCIPOTRIENE MONOHYDRATE [Suspect]
     Active Substance: BETAMETHASONE DIPROPIONATE\CALCIPOTRIENE MONOHYDRATE
     Dosage: RARELY, QV
     Route: 058
  138. HUMIRA [Suspect]
     Active Substance: ADALIMUMAB
     Indication: Psoriasis
     Dosage: UNK
     Route: 003
  139. HUMIRA [Suspect]
     Active Substance: ADALIMUMAB
     Dosage: UNK
     Route: 050
  140. HUMIRA [Suspect]
     Active Substance: ADALIMUMAB
     Dosage: UNK
     Route: 059
  141. HUMIRA [Suspect]
     Active Substance: ADALIMUMAB
     Dosage: UNK
     Route: 058
  142. HUMIRA [Suspect]
     Active Substance: ADALIMUMAB
     Dosage: UNK
     Route: 065
  143. HUMIRA [Suspect]
     Active Substance: ADALIMUMAB
     Dosage: UNK
     Route: 065
  144. HYDROXYUREA [Suspect]
     Active Substance: HYDROXYUREA
     Indication: Psoriasis
     Dosage: UNK
     Route: 065
  145. HYDROXYUREA [Suspect]
     Active Substance: HYDROXYUREA
     Dosage: UNK
     Route: 065
  146. HYDROXYUREA [Suspect]
     Active Substance: HYDROXYUREA
     Dosage: UNK
     Route: 065
  147. HYDROXYUREA [Suspect]
     Active Substance: HYDROXYUREA
     Route: 065
  148. HYDROXYUREA [Suspect]
     Active Substance: HYDROXYUREA
     Route: 065
  149. HYDROXYUREA [Suspect]
     Active Substance: HYDROXYUREA
     Route: 065
  150. HYDROXYUREA [Suspect]
     Active Substance: HYDROXYUREA
     Route: 065
  151. HYDROXYUREA [Suspect]
     Active Substance: HYDROXYUREA
     Route: 065
  152. HYDROXYUREA [Suspect]
     Active Substance: HYDROXYUREA
     Route: 065
  153. HYDROXYUREA [Suspect]
     Active Substance: HYDROXYUREA
     Dosage: UNK
     Route: 003
  154. HYDROXYUREA [Suspect]
     Active Substance: HYDROXYUREA
     Dosage: UNK
     Route: 050
  155. HYDROXYUREA [Suspect]
     Active Substance: HYDROXYUREA
     Dosage: UNK
     Route: 050
  156. HYDROXYUREA [Suspect]
     Active Substance: HYDROXYUREA
     Dosage: UNK
     Route: 050
  157. HYDROXYUREA [Suspect]
     Active Substance: HYDROXYUREA
     Dosage: UNK
     Route: 065
  158. HYDROXYUREA [Suspect]
     Active Substance: HYDROXYUREA
     Dosage: UNK
     Route: 065
  159. HYDROXYUREA [Suspect]
     Active Substance: HYDROXYUREA
     Dosage: UNK
     Route: 065
  160. HYDROXYUREA [Suspect]
     Active Substance: HYDROXYUREA
     Dosage: UNK
     Route: 065
  161. HYDROXYUREA [Suspect]
     Active Substance: HYDROXYUREA
     Dosage: UNK
     Route: 065
  162. HYDROXYUREA [Suspect]
     Active Substance: HYDROXYUREA
     Dosage: UNK
     Route: 065
  163. HYDROXYUREA [Suspect]
     Active Substance: HYDROXYUREA
     Dosage: UNK
     Route: 065
  164. HYDROXYUREA [Suspect]
     Active Substance: HYDROXYUREA
     Dosage: UNK
     Route: 065
  165. HYDROXYUREA [Suspect]
     Active Substance: HYDROXYUREA
     Dosage: UNK
     Route: 065
  166. HYDROXYUREA [Suspect]
     Active Substance: HYDROXYUREA
     Dosage: UNK
     Route: 065
  167. HYDROXYUREA [Suspect]
     Active Substance: HYDROXYUREA
     Dosage: UNK
     Route: 065
  168. HYDROXYUREA [Suspect]
     Active Substance: HYDROXYUREA
     Dosage: UNK
     Route: 065
  169. HYDROXYUREA [Suspect]
     Active Substance: HYDROXYUREA
     Route: 050
  170. HYDROXYUREA [Suspect]
     Active Substance: HYDROXYUREA
     Route: 050
  171. HYDROXYUREA [Suspect]
     Active Substance: HYDROXYUREA
     Route: 065
  172. METHOTREXATE [Suspect]
     Active Substance: METHOTREXATE
     Dosage: UNK
     Route: 065
  173. METHOTREXATE [Suspect]
     Active Substance: METHOTREXATE
     Dosage: 2 DOSAGE FORM, TID (30/500MG 2 TABLETS TDS) ;TIME INTERVAL
     Route: 048
  174. METHOTREXATE [Suspect]
     Active Substance: METHOTREXATE
     Dosage: UNK
     Route: 050
  175. METHOTREXATE [Suspect]
     Active Substance: METHOTREXATE
     Dosage: UNK
     Route: 050
  176. METHOTREXATE [Suspect]
     Active Substance: METHOTREXATE
     Dosage: UNK
     Route: 050
  177. METHOTREXATE [Suspect]
     Active Substance: METHOTREXATE
     Dosage: UNK
     Route: 050
  178. METHOTREXATE [Suspect]
     Active Substance: METHOTREXATE
     Indication: Psoriasis
     Dosage: UNK
     Route: 065
  179. METHOTREXATE [Suspect]
     Active Substance: METHOTREXATE
     Dosage: UNK
     Route: 065
  180. METHOTREXATE [Suspect]
     Active Substance: METHOTREXATE
     Dosage: UNK
     Route: 065
  181. METHOTREXATE [Suspect]
     Active Substance: METHOTREXATE
     Dosage: UNK
     Route: 065
  182. METHOTREXATE [Suspect]
     Active Substance: METHOTREXATE
     Dosage: UNK
     Route: 065
  183. METHOTREXATE [Suspect]
     Active Substance: METHOTREXATE
     Dosage: UNK
     Route: 065
  184. METHOTREXATE [Suspect]
     Active Substance: METHOTREXATE
     Route: 050
  185. METHOTREXATE [Suspect]
     Active Substance: METHOTREXATE
     Route: 050
  186. METHOTREXATE [Suspect]
     Active Substance: METHOTREXATE
     Dosage: UNK
     Route: 058
  187. METHOTREXATE [Suspect]
     Active Substance: METHOTREXATE
     Dosage: UNK
     Route: 065
  188. METHOTREXATE [Suspect]
     Active Substance: METHOTREXATE
     Indication: Psoriasis
     Dosage: UNK (SOLUTION FOR INJECTION)
     Route: 065
  189. ACETAMINOPHEN\CODEINE PHOSPHATE [Suspect]
     Active Substance: ACETAMINOPHEN\CODEINE PHOSPHATE
     Indication: Product used for unknown indication
     Dosage: 2 DF, TID (30/500MG 2 TABLETS TDS)6 DOSAGE FORM, QD
     Route: 048
  190. ACETAMINOPHEN\CODEINE PHOSPHATE [Suspect]
     Active Substance: ACETAMINOPHEN\CODEINE PHOSPHATE
     Indication: Product used for unknown indication
     Dosage: 6 DF, QD
     Route: 048
  191. SECUKINUMAB [Suspect]
     Active Substance: SECUKINUMAB
     Dosage: 300 MILLIGRAM (300 MG MONTHLY)
     Route: 065
  192. SECUKINUMAB [Suspect]
     Active Substance: SECUKINUMAB
     Dosage: 300 MILLIGRAM (300 MG MONTHLY)
     Route: 065
  193. SECUKINUMAB [Suspect]
     Active Substance: SECUKINUMAB
     Indication: Product used for unknown indication
     Dosage: 300 MG MONTHLY
     Route: 065
  194. SECUKINUMAB [Suspect]
     Active Substance: SECUKINUMAB
     Dosage: 300 MG, QMO, (OROMUCOSAL SUSPENSION)
     Route: 058
  195. SECUKINUMAB [Suspect]
     Active Substance: SECUKINUMAB
     Dosage: 300 MILLIGRAM (300 MG MONTHLY)
     Route: 058
  196. SECUKINUMAB [Suspect]
     Active Substance: SECUKINUMAB
     Dosage: 300 MILLIGRAM (300 MG MONTHLY)(300 MG, QMO) OROMUCOSAL SUSPENSION
     Route: 058
  197. SECUKINUMAB [Suspect]
     Active Substance: SECUKINUMAB
     Indication: Product used for unknown indication
     Dosage: 300 MG, QMO (MONTHLY)
     Route: 050
  198. SECUKINUMAB [Suspect]
     Active Substance: SECUKINUMAB
     Dosage: 300 MILLIGRAM
     Route: 065
  199. SECUKINUMAB [Suspect]
     Active Substance: SECUKINUMAB
     Dosage: 300 MILLIGRAM (300 MG MONTHLY)
     Route: 050
  200. SECUKINUMAB [Suspect]
     Active Substance: SECUKINUMAB
     Dosage: 300 MILLIGRAM (300 MG MONTHLY)
     Route: 065
  201. STELARA [Suspect]
     Active Substance: USTEKINUMAB
     Dosage: UNK
     Route: 065
  202. STELARA [Suspect]
     Active Substance: USTEKINUMAB
     Dosage: UNK
     Route: 050
  203. STELARA [Suspect]
     Active Substance: USTEKINUMAB
     Dosage: UNK
     Route: 050
  204. STELARA [Suspect]
     Active Substance: USTEKINUMAB
     Dosage: UNK
     Route: 059
  205. STELARA [Suspect]
     Active Substance: USTEKINUMAB
     Indication: Psoriasis
     Dosage: UNK
     Route: 065
  206. STELARA [Suspect]
     Active Substance: USTEKINUMAB
     Dosage: UNK
     Route: 065
  207. STELARA [Suspect]
     Active Substance: USTEKINUMAB
     Dosage: UNK
     Route: 050
  208. STELARA [Suspect]
     Active Substance: USTEKINUMAB
     Dosage: UNK
     Route: 050
  209. STELARA [Suspect]
     Active Substance: USTEKINUMAB
     Dosage: UNK
     Route: 050
  210. STELARA [Suspect]
     Active Substance: USTEKINUMAB
     Dosage: UNK
     Route: 058
  211. STELARA [Suspect]
     Active Substance: USTEKINUMAB
     Dosage: UNK
     Route: 058
  212. STELARA [Suspect]
     Active Substance: USTEKINUMAB
     Dosage: UNK
     Route: 058
  213. STELARA [Suspect]
     Active Substance: USTEKINUMAB
     Dosage: UNK
     Route: 058
  214. STELARA [Suspect]
     Active Substance: USTEKINUMAB
     Dosage: UNK
     Route: 058
  215. STELARA [Suspect]
     Active Substance: USTEKINUMAB
     Dosage: UNK
     Route: 058
  216. STELARA [Suspect]
     Active Substance: USTEKINUMAB
     Dosage: UNK
     Route: 058
  217. STELARA [Suspect]
     Active Substance: USTEKINUMAB
     Dosage: UNK
     Route: 058
  218. STELARA [Suspect]
     Active Substance: USTEKINUMAB
     Dosage: UNK
     Route: 058
  219. STELARA [Suspect]
     Active Substance: USTEKINUMAB
     Dosage: UNK
     Route: 058
  220. STELARA [Suspect]
     Active Substance: USTEKINUMAB
     Dosage: UNK
     Route: 058
  221. STELARA [Suspect]
     Active Substance: USTEKINUMAB
     Dosage: UNK
     Route: 058
  222. STELARA [Suspect]
     Active Substance: USTEKINUMAB
     Dosage: UNK
     Route: 058
  223. STELARA [Suspect]
     Active Substance: USTEKINUMAB
     Dosage: UNK
     Route: 058
  224. STELARA [Suspect]
     Active Substance: USTEKINUMAB
     Dosage: UNK
     Route: 058
  225. STELARA [Suspect]
     Active Substance: USTEKINUMAB
     Dosage: UNK
     Route: 058
  226. STELARA [Suspect]
     Active Substance: USTEKINUMAB
     Dosage: UNK
     Route: 058
  227. STELARA [Suspect]
     Active Substance: USTEKINUMAB
     Dosage: UNK
     Route: 058
  228. STELARA [Suspect]
     Active Substance: USTEKINUMAB
     Dosage: UNK
     Route: 058
  229. STELARA [Suspect]
     Active Substance: USTEKINUMAB
     Dosage: UNK
     Route: 058
  230. STELARA [Suspect]
     Active Substance: USTEKINUMAB
     Dosage: UNK
     Route: 058
  231. STELARA [Suspect]
     Active Substance: USTEKINUMAB
     Dosage: UNK
     Route: 058
  232. STELARA [Suspect]
     Active Substance: USTEKINUMAB
     Dosage: UNK
     Route: 058
  233. STELARA [Suspect]
     Active Substance: USTEKINUMAB
     Dosage: UNK
     Route: 058
  234. STELARA [Suspect]
     Active Substance: USTEKINUMAB
     Dosage: UNK
     Route: 058
  235. STELARA [Suspect]
     Active Substance: USTEKINUMAB
     Dosage: UNK
     Route: 058
  236. STELARA [Suspect]
     Active Substance: USTEKINUMAB
     Dosage: UNK
     Route: 065
  237. STELARA [Suspect]
     Active Substance: USTEKINUMAB
     Dosage: UNK
     Route: 065
  238. STELARA [Suspect]
     Active Substance: USTEKINUMAB
     Route: 050
  239. STELARA [Suspect]
     Active Substance: USTEKINUMAB
     Route: 058
  240. STELARA [Suspect]
     Active Substance: USTEKINUMAB
     Route: 058
  241. STELARA [Suspect]
     Active Substance: USTEKINUMAB
     Route: 058
  242. STELARA [Suspect]
     Active Substance: USTEKINUMAB
     Route: 058
  243. STELARA [Suspect]
     Active Substance: USTEKINUMAB
     Route: 058
  244. STELARA [Suspect]
     Active Substance: USTEKINUMAB
     Route: 058
  245. STELARA [Suspect]
     Active Substance: USTEKINUMAB
     Route: 058
  246. STELARA [Suspect]
     Active Substance: USTEKINUMAB
     Route: 058
  247. STELARA [Suspect]
     Active Substance: USTEKINUMAB
     Route: 058
  248. STELARA [Suspect]
     Active Substance: USTEKINUMAB
     Route: 058
  249. STELARA [Suspect]
     Active Substance: USTEKINUMAB
     Route: 058
  250. STELARA [Suspect]
     Active Substance: USTEKINUMAB
     Route: 058
  251. STELARA [Suspect]
     Active Substance: USTEKINUMAB
     Route: 058

REACTIONS (13)
  - Skin hyperpigmentation [Unknown]
  - Wheezing [Unknown]
  - Wheezing [Unknown]
  - Hypertension [Unknown]
  - Hypertension [Unknown]
  - Rash [Unknown]
  - Burning sensation [Unknown]
  - Chest pain [Unknown]
  - Pruritus [Unknown]
  - Drug ineffective [Unknown]
  - Drug ineffective [Unknown]
  - Therapeutic product effect incomplete [Unknown]
  - Therapeutic product effect incomplete [Unknown]
